FAERS Safety Report 5765363-3 (Version None)
Quarter: 2008Q2

REPORT INFORMATION
  Report Type: 
  Country: None (occurrence: None)
  Receive Date: 20080609
  Receipt Date: 20080609
  Transmission Date: 20081010
  Serious: Yes (Life-Threatening, Other)
  Sender: FDA-Public Use
  Company Number: None

PATIENT
  Age: 82 Year
  Sex: Female
  Weight: 77.1115 kg

DRUGS (1)
  1. LYRICA [Suspect]
     Indication: NEUROPATHY PERIPHERAL
     Dosage: 75MG  2 X DAILY
     Dates: start: 20061203, end: 20070106

REACTIONS (14)
  - ASTHENIA [None]
  - DYSSTASIA [None]
  - FALL [None]
  - FATIGUE [None]
  - FEMUR FRACTURE [None]
  - GAIT DISTURBANCE [None]
  - INSOMNIA [None]
  - LOSS OF CONTROL OF LEGS [None]
  - NEUROPATHY PERIPHERAL [None]
  - SKIN LACERATION [None]
  - VISION BLURRED [None]
  - WALKING AID USER [None]
  - WEIGHT INCREASED [None]
  - WHEELCHAIR USER [None]
